FAERS Safety Report 8315578-5 (Version None)
Quarter: 2012Q2

REPORT INFORMATION
  Report Type: 
  Country: None (occurrence: None)
  Receive Date: 20120426
  Receipt Date: 20120418
  Transmission Date: 20120825
  Serious: Yes (Other)
  Sender: FDA-Public Use
  Company Number: DE-ROCHE-1050864

PATIENT
  Sex: Female
  Weight: 46 kg

DRUGS (2)
  1. AVASTIN [Suspect]
     Indication: AGE-RELATED MACULAR DEGENERATION
     Route: 050
     Dates: start: 20090710, end: 20110929
  2. AVASTIN [Suspect]
     Route: 050
     Dates: start: 20120207, end: 20120207

REACTIONS (5)
  - LICHEN PLANUS [None]
  - ORAL LICHEN PLANUS [None]
  - STOMATITIS [None]
  - ASTHENIA [None]
  - APHAGIA [None]
